FAERS Safety Report 5276288-4 (Version None)
Quarter: 2007Q1

REPORT INFORMATION
  Report Type: 
  Country: None (occurrence: None)
  Receive Date: 20070326
  Receipt Date: 20070314
  Transmission Date: 20070707
  Serious: Yes (Other)
  Sender: FDA-Public Use
  Company Number: CA-PFIZER INC-2007007516

PATIENT
  Age: 57 Year
  Sex: Female

DRUGS (5)
  1. SUTENT [Suspect]
     Indication: RENAL CELL CARCINOMA STAGE UNSPECIFIED
  2. WARFARIN SODIUM [Suspect]
  3. ENOXAPARIN SODIUM [Concomitant]
     Route: 065
  4. VITAMINS [Concomitant]
     Route: 065
  5. ANTINEOPLASTIC AGENTS [Concomitant]
     Route: 065

REACTIONS (9)
  - BLOOD URINE PRESENT [None]
  - FEELING COLD [None]
  - HAEMATOCHEZIA [None]
  - HEADACHE [None]
  - HOT FLUSH [None]
  - INFLUENZA [None]
  - LETHARGY [None]
  - SALIVA ALTERED [None]
  - STOMATITIS [None]
